FAERS Safety Report 10740921 (Version 1)
Quarter: 2015Q1

REPORT INFORMATION
  Report Type: Spontaneous
  Country: GR (occurrence: None)
  Receive Date: 20150123
  Receipt Date: 20150123
  Transmission Date: 20150721
  Serious: Yes (Other)
  Sender: FDA-Public Use
  Company Number: KAD201410-001336

PATIENT
  Age: 69 Year
  Sex: Male

DRUGS (3)
  1. RIBAVIRIN (RIBAVIRIN) [Suspect]
     Active Substance: RIBAVIRIN
     Indication: CORONA VIRUS INFECTION
     Dosage: LOADING DOSE
     Route: 048
     Dates: start: 201404
  2. LOPINAVIR/RITONAVIR [Suspect]
     Active Substance: LOPINAVIR\RITONAVIR
     Indication: CORONA VIRUS INFECTION
     Route: 048
     Dates: start: 201404
  3. PEGYLATED INTERFERON NOS [Suspect]
     Active Substance: PEGINTERFERON ALFA-2A OR PEGINTERFERON ALFA-2B OR PEGINTERFERON BETA-1A OR PEGINTERFERON LAMBDA-1A
     Indication: CORONA VIRUS INFECTION
     Dosage: PER WEEK
     Dates: start: 201404

REACTIONS (6)
  - Product use issue [None]
  - Jaundice [None]
  - Septic shock [None]
  - Renal failure [None]
  - Hyperbilirubinaemia [None]
  - Adenocarcinoma of colon [None]
